FAERS Safety Report 7364969-8 (Version None)
Quarter: 2011Q1

REPORT INFORMATION
  Report Type: 
  Country: None (occurrence: None)
  Receive Date: 20110321
  Receipt Date: 20110309
  Transmission Date: 20110831
  Serious: Yes (Other)
  Sender: FDA-Public Use
  Company Number: US-CELGENEUS-163-21880-11012115

PATIENT
  Sex: Male
  Weight: 73.548 kg

DRUGS (16)
  1. DEXAMETHASONE [Concomitant]
     Dosage: 4 MILLIGRAM
     Route: 065
  2. OMEPRAZOLE [Concomitant]
     Dosage: 40 MILLIGRAM
     Route: 065
  3. ASPIRIN [Concomitant]
     Dosage: 81 MILLIGRAM
     Route: 065
  4. LEVOTHYROXINE SODIUM [Concomitant]
     Dosage: 50 MICROGRAM
     Route: 065
  5. VELCADE [Concomitant]
     Route: 065
  6. LISINOPRIL [Concomitant]
     Dosage: 20 MILLIGRAM
     Route: 065
  7. IMODIUM MULTI-SYMPTOM RELIEF [Concomitant]
     Route: 065
     Dates: start: 20100211
  8. POTASSIUM CHLORIDE [Concomitant]
     Dosage: 75 MILLIGRAM
     Route: 065
  9. AREDIA [Concomitant]
     Dosage: 30 MILLIGRAM
     Route: 065
  10. TOPROL-XL [Concomitant]
     Dosage: 25 MILLIGRAM
     Route: 065
  11. VITAMIN D [Concomitant]
     Dosage: 5000 IU (INTERNATIONAL UNIT)
     Route: 065
  12. LYRICA [Concomitant]
     Dosage: 75 MILLIGRAM
     Route: 065
  13. VITAMIN B-12 [Concomitant]
     Route: 065
  14. REVLIMID [Suspect]
     Indication: MULTIPLE MYELOMA
     Dosage: 25 MILLIGRAM
     Route: 048
     Dates: start: 20081101
  15. SIMVASTATIN [Concomitant]
     Dosage: 40 MILLIGRAM
     Route: 065
  16. AMLODIPINE [Concomitant]
     Dosage: 5 MILLIGRAM
     Route: 065

REACTIONS (4)
  - RED BLOOD CELL COUNT DECREASED [None]
  - ORAL HERPES [None]
  - BRONCHITIS [None]
  - CORONARY ARTERY DISEASE [None]
